FAERS Safety Report 5097953-8 (Version None)
Quarter: 2006Q3

REPORT INFORMATION
  Report Type: 
  Country: None (occurrence: None)
  Receive Date: 20060905
  Receipt Date: 20060822
  Transmission Date: 20061208
  Serious: Yes (Other)
  Sender: FDA-Public Use
  Company Number: PHBS2006JP09844

PATIENT
  Age: 49 Year
  Sex: Female

DRUGS (5)
  1. NEORAL [Suspect]
     Indication: DERMATOMYOSITIS
     Dosage: 100 MG/D, ORAL; 50 MG/D, ORAL
     Route: 048
     Dates: start: 20050315, end: 20050510
  2. NEORAL [Suspect]
     Indication: DERMATOMYOSITIS
     Dosage: 100 MG/D, ORAL; 50 MG/D, ORAL
     Route: 048
     Dates: start: 20050511
  3. PREDNISOLONE [Suspect]
     Indication: DERMATOMYOSITIS
     Dosage: 30 MG/D, ORAL; 20 MG/D, ORAL; 17.5 MG/D, ORAL
     Route: 048
     Dates: start: 20050228, end: 20050420
  4. PREDNISOLONE [Suspect]
     Indication: DERMATOMYOSITIS
     Dosage: 30 MG/D, ORAL; 20 MG/D, ORAL; 17.5 MG/D, ORAL
     Route: 048
     Dates: start: 20050421, end: 20050610
  5. PREDNISOLONE [Suspect]
     Indication: DERMATOMYOSITIS
     Dosage: 30 MG/D, ORAL; 20 MG/D, ORAL; 17.5 MG/D, ORAL
     Route: 048
     Dates: start: 20050611

REACTIONS (3)
  - PNEUMOMEDIASTINUM [None]
  - SKIN ULCER [None]
  - SUBCUTANEOUS EMPHYSEMA [None]
